FAERS Safety Report 6831247-2 (Version None)
Quarter: 2010Q3

REPORT INFORMATION
  Report Type: 
  Country: None (occurrence: None)
  Receive Date: 20100709
  Receipt Date: 20100709
  Transmission Date: 20110219
  Serious: Yes (Hospitalization)
  Sender: FDA-Public Use
  Company Number: None

PATIENT
  Age: 66 Year
  Sex: Male
  Weight: 80 kg

DRUGS (2)
  1. WARFARIN SODIUM [Suspect]
     Indication: ATRIAL FIBRILLATION
     Dosage: PO
     Dates: start: 20060310
  2. CLOPIDOGREL [Suspect]
     Dates: start: 20090904, end: 20100616

REACTIONS (6)
  - ASTHENIA [None]
  - BRAIN MIDLINE SHIFT [None]
  - CEREBRAL HAEMORRHAGE [None]
  - CLOSTRIDIUM DIFFICILE COLITIS [None]
  - DECREASED APPETITE [None]
  - INTERNATIONAL NORMALISED RATIO INCREASED [None]
